FAERS Safety Report 4835401-0 (Version None)
Quarter: 2005Q4

REPORT INFORMATION
  Report Type: 
  Country: None (occurrence: None)
  Receive Date: 20051118
  Receipt Date: 20051109
  Transmission Date: 20060501
  Serious: Yes (Other)
  Sender: FDA-Public Use
  Company Number: 200512510BWH

PATIENT
  Sex: Female

DRUGS (3)
  1. TRASYLOL [Suspect]
     Indication: CORONARY ARTERY SURGERY
     Dates: start: 20051101
  2. TRASYLOL [Suspect]
     Indication: MITRAL VALVE REPAIR
     Dates: start: 20051101
  3. AMINOCAPROIC [Concomitant]

REACTIONS (2)
  - BRONCHOSPASM [None]
  - PROCEDURAL COMPLICATION [None]
